FAERS Safety Report 5935573-0 (Version None)
Quarter: 2008Q4

REPORT INFORMATION
  Report Type: 
  Country: None (occurrence: None)
  Receive Date: 20081030
  Receipt Date: 20081029
  Transmission Date: 20090506
  Serious: Yes (Life-Threatening, Hospitalization, Disabling, Other)
  Sender: FDA-Public Use
  Company Number: A0754078A

PATIENT
  Age: 59 Year
  Sex: Male

DRUGS (11)
  1. EPZICOM [Suspect]
     Indication: HIV INFECTION
     Dosage: 1TAB PER DAY
     Route: 048
  2. NORVIR [Concomitant]
  3. INVIRASE [Concomitant]
  4. WELLBUTRIN [Concomitant]
  5. ASPIRIN [Concomitant]
  6. FLOMAX [Concomitant]
  7. TESTOSTERONE [Concomitant]
  8. MORPHINE [Concomitant]
  9. MULTI-VITAMINS [Concomitant]
  10. TRAMADOL HCL [Concomitant]
  11. PILOCARPINE [Concomitant]

REACTIONS (3)
  - CHEST PAIN [None]
  - HYPERSENSITIVITY [None]
  - RESPIRATORY DISTRESS [None]
